FAERS Safety Report 10399653 (Version 1)
Quarter: 2014Q3

REPORT INFORMATION
  Report Type: Spontaneous
  Country: US (occurrence: US)
  Receive Date: 20140821
  Receipt Date: 20140821
  Transmission Date: 20150326
  Serious: Yes (Hospitalization)
  Sender: FDA-Public Use
  Company Number: PHEH2014US016315

PATIENT
  Age: 31 Year
  Sex: Male

DRUGS (8)
  1. FANAPT [Interacting]
     Active Substance: ILOPERIDONE
     Dosage: 3 MG, (2 MG IN MORNING AND 1 MG AT NIGHT)
     Dates: start: 20140716, end: 20140717
  2. FANAPT [Suspect]
     Active Substance: ILOPERIDONE
     Dosage: 1 MG, UNK
     Dates: start: 20140711, end: 20140713
  3. FANAPT [Interacting]
     Active Substance: ILOPERIDONE
     Dosage: 4 MG, BID (4 MG IN THE MORNING AND 4 MG AT NIGHT)
     Dates: start: 20140731
  4. FANAPT [Interacting]
     Active Substance: ILOPERIDONE
     Dosage: 2 MG, BID
     Dates: start: 20140718, end: 20140729
  5. FANAPT [Interacting]
     Active Substance: ILOPERIDONE
     Dosage: 3 MG, BID (3 MG IN THE MORNING AND 3 MG AT NIGHT)
     Dates: start: 20140730, end: 20140730
  6. FANAPT [Interacting]
     Active Substance: ILOPERIDONE
     Dosage: 6 MG, (4 MG IN THE MORNING AND 2 MG AT NIGHT)
  7. THORAZINE [Interacting]
     Active Substance: CHLORPROMAZINE
     Dosage: UNK UKN, UNK
  8. FANAPT [Interacting]
     Active Substance: ILOPERIDONE
     Dosage: 1 MG, BID
     Dates: start: 20140714, end: 20140715

REACTIONS (11)
  - Joint swelling [Unknown]
  - Peripheral swelling [Unknown]
  - Psychotic disorder [Unknown]
  - Anorgasmia [Unknown]
  - Social avoidant behaviour [Unknown]
  - Mental retardation [Unknown]
  - Drug interaction [Unknown]
  - Rash [Unknown]
  - Muscle swelling [Unknown]
  - Abnormal behaviour [Unknown]
  - Convulsion [Unknown]

NARRATIVE: CASE EVENT DATE: 20140804
